FAERS Safety Report 5110197-6 (Version None)
Quarter: 2006Q3

REPORT INFORMATION
  Report Type: 
  Country: None (occurrence: None)
  Receive Date: 20060921
  Receipt Date: 20060313
  Transmission Date: 20061208
  Serious: Yes (Hospitalization)
  Sender: FDA-Public Use
  Company Number: FR-ROCHE-440263

PATIENT
  Age: 73 Year
  Sex: Male

DRUGS (1)
  1. XENICAL [Suspect]
     Indication: OVERWEIGHT
     Dosage: REPORTED AS ^2 TABLETS EVERY DAY^
     Route: 048

REACTIONS (4)
  - ARRHYTHMIA [None]
  - ATRIAL FIBRILLATION [None]
  - FATTY ACID DEFICIENCY [None]
  - MALAISE [None]
